FAERS Safety Report 6926190-4 (Version None)
Quarter: 2010Q3

REPORT INFORMATION
  Report Type: 
  Country: None (occurrence: None)
  Receive Date: 20100813
  Receipt Date: 20100813
  Transmission Date: 20110219
  Serious: No
  Sender: FDA-Public Use
  Company Number: None

PATIENT
  Sex: Male
  Weight: 78.7 kg

DRUGS (10)
  1. METFORMIN HCL [Suspect]
     Indication: TYPE 2 DIABETES MELLITUS
     Dosage: 500MG DAILY PO
     Route: 048
  2. LOVASTATIN [Concomitant]
  3. OMEPRAZOLE [Concomitant]
  4. METOPROLOL TARTRATE [Concomitant]
  5. METFORMIN HCL [Concomitant]
  6. ASPIRIN [Concomitant]
  7. LASIX [Concomitant]
  8. DIOVAN [Concomitant]
  9. CALCIUM [Concomitant]
  10. NITROSTAT [Concomitant]

REACTIONS (1)
  - LACTIC ACIDOSIS [None]
